FAERS Safety Report 23606246 (Version 2)
Quarter: 2024Q1

REPORT INFORMATION
  Report Type: Spontaneous
  Country: FR (occurrence: FR)
  Receive Date: 20240307
  Receipt Date: 20240314
  Transmission Date: 20240409
  Serious: Yes (Death, Other)
  Sender: FDA-Public Use
  Company Number: None

PATIENT
  Age: 54 Year
  Sex: Male
  Weight: 78 kg

DRUGS (7)
  1. CLOBAZAM [Interacting]
     Active Substance: CLOBAZAM
     Indication: Epilepsy
     Dosage: 30 MG, QD
     Route: 048
     Dates: start: 20231115, end: 20240115
  2. LEVOMEPROMAZINE [Interacting]
     Active Substance: LEVOMEPROMAZINE
     Indication: Psychotic disorder
     Dosage: 200 MG, QD
     Route: 048
     Dates: start: 20231115, end: 20240115
  3. OXAZEPAM [Interacting]
     Active Substance: OXAZEPAM
     Indication: Psychotic disorder
     Dosage: 15 MG, QD
     Route: 048
     Dates: start: 20231115, end: 20240115
  4. CLOZAPINE [Interacting]
     Active Substance: CLOZAPINE
     Indication: Psychotic disorder
     Dosage: 600 MG, QD
     Route: 048
     Dates: start: 20100415, end: 20240115
  5. LOXAPINE SUCCINATE [Interacting]
     Active Substance: LOXAPINE SUCCINATE
     Indication: Psychotic disorder
     Dosage: 225 MG, QD
     Route: 048
     Dates: start: 20100415, end: 20240115
  6. HALDOL [Interacting]
     Active Substance: HALOPERIDOL
     Indication: Psychotic disorder
     Dosage: 20 MG, QD
     Route: 048
     Dates: start: 20231115, end: 20240115
  7. TRIMEPRAZINE [Interacting]
     Active Substance: TRIMEPRAZINE
     Indication: Psychotic disorder
     Dosage: 20 MG, QD
     Route: 048
     Dates: start: 20231115, end: 20240115

REACTIONS (1)
  - Cardio-respiratory arrest [Fatal]

NARRATIVE: CASE EVENT DATE: 20240115
